FAERS Safety Report 4372149-3 (Version None)
Quarter: 2004Q2

REPORT INFORMATION
  Report Type: 
  Country: None (occurrence: None)
  Receive Date: 20040607
  Receipt Date: 20040107
  Transmission Date: 20050107
  Serious: Yes (Hospitalization)
  Sender: FDA-Public Use
  Company Number: US-GLAXOSMITHKLINE-A0493805A

PATIENT
  Age: 64 Year
  Sex: Male

DRUGS (17)
  1. AVANDIA [Suspect]
     Dosage: 8MG PER DAY
     Route: 048
     Dates: start: 20010906, end: 20020625
  2. AVANDIA [Suspect]
     Dosage: 4MG PER DAY
     Route: 048
     Dates: start: 19991209, end: 20010906
  3. GLUCOPHAGE [Concomitant]
     Dosage: 1000MG TWICE PER DAY
     Route: 048
     Dates: end: 20010601
  4. GLYNASE [Concomitant]
     Dosage: 6MG TWICE PER DAY
     Route: 048
     Dates: end: 20020101
  5. ZANTAC [Concomitant]
     Dosage: 150MG AT NIGHT
     Route: 048
  6. DIABINESE [Concomitant]
     Route: 048
     Dates: start: 19810724
  7. INDERAL [Concomitant]
     Indication: TREMOR
     Dosage: 20MG THREE TIMES PER DAY
     Route: 048
  8. GLUCOPHAGE XR [Concomitant]
     Dosage: 500MG PER DAY
     Route: 048
     Dates: start: 20010601
  9. VALTREX [Concomitant]
     Dosage: 50MG PER DAY
     Route: 048
  10. FLONASE [Concomitant]
     Route: 045
  11. FLOMAX [Concomitant]
  12. CLARITIN [Concomitant]
  13. INSULIN [Concomitant]
     Route: 058
     Dates: end: 20020101
  14. GLUCOTROL [Concomitant]
     Dosage: 10MG PER DAY
     Route: 048
     Dates: start: 20020101
  15. NEXIUM [Concomitant]
     Route: 048
  16. VIAGRA [Concomitant]
     Route: 048
  17. GLYBURIDE [Concomitant]

REACTIONS (1)
  - HEPATIC CIRRHOSIS [None]
